FAERS Safety Report 6581056-7 (Version None)
Quarter: 2010Q1

REPORT INFORMATION
  Report Type: 
  Country: None (occurrence: None)
  Receive Date: 20100215
  Receipt Date: 20100202
  Transmission Date: 20100710
  Serious: Yes (Hospitalization, Disabling)
  Sender: FDA-Public Use
  Company Number: PHEH2010US01914

PATIENT
  Sex: Female
  Weight: 76.644 kg

DRUGS (4)
  1. RECLAST [Suspect]
     Dosage: 5 MG, ONCE/SINGLE
     Dates: start: 20071218, end: 20071218
  2. RECLAST [Suspect]
     Dosage: 5 MG, ONCE/SINGLE
     Dates: start: 20081219, end: 20081219
  3. RECLAST [Suspect]
     Dosage: 5 MG, ONCE/SINGLE
     Dates: start: 20100106, end: 20100106
  4. ASACOL [Concomitant]
     Dosage: UNK, UNK

REACTIONS (7)
  - CENTRAL NERVOUS SYSTEM LESION [None]
  - CEREBROVASCULAR ACCIDENT [None]
  - DYSARTHRIA [None]
  - HEADACHE [None]
  - HEMIPARESIS [None]
  - INFUSION SITE EXTRAVASATION [None]
  - MEMORY IMPAIRMENT [None]
